FAERS Safety Report 8797734 (Version 2)
Quarter: 2013Q2

REPORT INFORMATION
  Report Type: Spontaneous
  Country: US (occurrence: US)
  Receive Date: 20120920
  Receipt Date: 20130510
  Transmission Date: 20140414
  Serious: Yes (Other)
  Sender: FDA-Public Use
  Company Number: US-009507513-2011SP005961

PATIENT
  Sex: Female

DRUGS (1)
  1. SAPHRIS [Suspect]
     Dosage: 5 MG, 1 TABLET NIGHTLY
     Route: 060

REACTIONS (3)
  - Hypoaesthesia oral [Recovering/Resolving]
  - Glossodynia [Recovering/Resolving]
  - Underdose [Unknown]
